FAERS Safety Report 5191308-3 (Version None)
Quarter: 2006Q4

REPORT INFORMATION
  Report Type: 
  Country: None (occurrence: None)
  Receive Date: 20061219
  Receipt Date: 20061206
  Transmission Date: 20070319
  Serious: Yes (Hospitalization)
  Sender: FDA-Public Use
  Company Number: 2006PV026452

PATIENT
  Age: 49 Year
  Sex: Male
  Weight: 97.5234 kg

DRUGS (14)
  1. BYETTA [Suspect]
     Indication: DIABETES MELLITUS NON-INSULIN-DEPENDENT
     Dosage: 10 MCG, BID; SC,
     Route: 058
     Dates: start: 20051001
  2. BYETTA [Suspect]
     Indication: DIABETES MELLITUS NON-INSULIN-DEPENDENT
     Dosage: 5 MCG, BID; SC
     Route: 058
     Dates: start: 20050901, end: 20051001
  3. HUMALOG [Concomitant]
  4. NPH INSULIN [Concomitant]
  5. METFORMIN HCL [Concomitant]
  6. AMARYL [Concomitant]
  7. NORVASC [Concomitant]
  8. VERAPAMIL [Concomitant]
  9. VYTORIN [Concomitant]
  10. CYMBALTA [Concomitant]
  11. ECSTACY [Concomitant]
  12. POTASSIUM ACETATE [Concomitant]
  13. ALTACE [Concomitant]
  14. CHROMIUM PICOLINATE [Concomitant]

REACTIONS (8)
  - ARRHYTHMIA [None]
  - ARTERIAL OCCLUSIVE DISEASE [None]
  - ARTERIOSCLEROSIS [None]
  - BLOOD GLUCOSE DECREASED [None]
  - FALL [None]
  - LOSS OF CONSCIOUSNESS [None]
  - WEIGHT DECREASED [None]
  - WOLFF-PARKINSON-WHITE SYNDROME [None]
